FAERS Safety Report 10600432 (Version 1)
Quarter: 2014Q4

REPORT INFORMATION
  Report Type: Spontaneous
  Country: US (occurrence: US)
  Receive Date: 20141124
  Receipt Date: 20141124
  Transmission Date: 20150529
  Serious: Yes (Hospitalization)
  Sender: FDA-Public Use
  Company Number: US-CIPLA LTD.-2014US02075

PATIENT

DRUGS (2)
  1. BARBITURATES (DRUG UNKNOWN) [Suspect]
     Active Substance: UNSPECIFIED INGREDIENT
  2. AMLODIPINE [Suspect]
     Active Substance: AMLODIPINE BESYLATE

REACTIONS (13)
  - Vomiting [Recovered/Resolved]
  - Somnolence [Recovered/Resolved]
  - Heart rate increased [Recovered/Resolved]
  - Nausea [Recovered/Resolved]
  - Intentional overdose [Recovered/Resolved]
  - Blood creatinine increased [Recovered/Resolved]
  - Mental impairment [Recovered/Resolved]
  - Fatigue [Recovered/Resolved]
  - Hypotension [Recovered/Resolved]
  - Lactic acidosis [None]
  - Oliguria [Recovered/Resolved]
  - Metabolic acidosis [Recovered/Resolved]
  - Exposure via ingestion [None]
